FAERS Safety Report 7595739-3 (Version None)
Quarter: 2011Q3

REPORT INFORMATION
  Report Type: 
  Country: None (occurrence: None)
  Receive Date: 20110707
  Receipt Date: 20110630
  Transmission Date: 20111222
  Serious: Yes (Hospitalization, Other)
  Sender: FDA-Public Use
  Company Number: US-PFIZER INC-2010006380

PATIENT
  Sex: Female

DRUGS (7)
  1. FLUTICASONE [Concomitant]
     Indication: SINUSITIS
     Dosage: UNK
     Dates: start: 20060601, end: 20080911
  2. CHANTIX [Suspect]
     Indication: SMOKING CESSATION THERAPY
     Dosage: UNK
     Dates: start: 20070117, end: 20070601
  3. ADVAIR DISKUS 100/50 [Concomitant]
     Indication: CHRONIC OBSTRUCTIVE PULMONARY DISEASE
     Dosage: UNK
     Dates: start: 20060501, end: 20090916
  4. SPIRIVA [Concomitant]
     Indication: CHRONIC OBSTRUCTIVE PULMONARY DISEASE
     Dosage: UNK
     Dates: start: 20060501, end: 20080711
  5. PROZAC [Concomitant]
     Indication: DEPRESSION
     Dosage: UNK
     Dates: start: 20060101, end: 20090916
  6. BUPROPION [Concomitant]
     Indication: DEPRESSION
     Dosage: UNK
     Dates: start: 20060101, end: 20090916
  7. ALBUTEROL SULFATE AUTOHALER [Concomitant]
     Indication: CHRONIC OBSTRUCTIVE PULMONARY DISEASE
     Dosage: UNK
     Dates: start: 20060101, end: 20090916

REACTIONS (8)
  - AGGRESSION [None]
  - MAJOR DEPRESSION [None]
  - PARANOIA [None]
  - SUICIDE ATTEMPT [None]
  - THINKING ABNORMAL [None]
  - INTENTIONAL OVERDOSE [None]
  - BIPOLAR DISORDER [None]
  - INSOMNIA [None]
